FAERS Safety Report 7658541-X (Version None)
Quarter: 2011Q3

REPORT INFORMATION
  Report Type: 
  Country: None (occurrence: None)
  Receive Date: 20110805
  Receipt Date: 20110726
  Transmission Date: 20111222
  Serious: Yes (Hospitalization)
  Sender: FDA-Public Use
  Company Number: FR-SANOFI-AVENTIS-2011SA047591

PATIENT
  Age: 75 Year
  Sex: Male

DRUGS (4)
  1. BUMETANIDE [Concomitant]
  2. DANAZOL [Suspect]
     Route: 048
     Dates: start: 19920101, end: 20110330
  3. DILTIAZEM HCL [Concomitant]
  4. DIGOXIN [Concomitant]

REACTIONS (1)
  - PULMONARY FIBROSIS [None]
